FAERS Safety Report 5693613-0 (Version None)
Quarter: 2008Q2

REPORT INFORMATION
  Report Type: 
  Country: None (occurrence: None)
  Receive Date: 20080328
  Receipt Date: 20071015
  Transmission Date: 20081010
  Serious: Yes (Other)
  Sender: FDA-Public Use
  Company Number: US-WYE-H00727107

PATIENT
  Age: 72 Year
  Sex: Female
  Weight: 68.1 kg

DRUGS (12)
  1. PROTONIX [Suspect]
     Indication: GASTROOESOPHAGEAL REFLUX DISEASE
     Dosage: 40 MG 2X PER 1 DAY
  2. PROTONIX [Suspect]
     Indication: PEPTIC ULCER
     Dosage: 40 MG 2X PER 1 DAY
  3. SYNTHROID [Concomitant]
  4. NORVASC [Concomitant]
  5. TOPROL-XL [Concomitant]
  6. ZINC SULFATE (ZINC SULFATE) [Concomitant]
  7. REGLAN [Concomitant]
  8. ALTACE [Concomitant]
  9. DESYREL [Concomitant]
  10. ZETIA [Concomitant]
  11. CATAPRES [Concomitant]
  12. VITAMIN B12 [Concomitant]

REACTIONS (1)
  - DRUG SCREEN POSITIVE [None]
